FAERS Safety Report 21088765 (Version 3)
Quarter: 2022Q3

REPORT INFORMATION
  Report Type: Spontaneous
  Country: JP (occurrence: JP)
  Receive Date: 20220715
  Receipt Date: 20220817
  Transmission Date: 20221027
  Serious: Yes (Death, Life-Threatening, Hospitalization, Other)
  Sender: FDA-Public Use
  Company Number: JP-PFIZER INC-PV202200020972

PATIENT
  Age: 45 Year
  Sex: Male
  Weight: 64 kg

DRUGS (6)
  1. LYRICA [Suspect]
     Active Substance: PREGABALIN
     Indication: Neuropathy peripheral
     Dosage: 150 MG, TWICE A DAY
     Dates: start: 20210118, end: 20220615
  2. LENVIMA [Suspect]
     Active Substance: LENVATINIB
     Indication: Thymic carcinoma
     Dosage: 20 MG, ONCE A DAY
     Route: 048
     Dates: start: 20220516, end: 20220523
  3. SODIUM FERROUS CITRATE [Concomitant]
     Active Substance: SODIUM FERROUS CITRATE
     Indication: Anaemia
     Dosage: 100 MG, 1X/DAY
     Route: 048
     Dates: start: 20211108, end: 20220615
  4. NEXIUM [Concomitant]
     Active Substance: ESOMEPRAZOLE MAGNESIUM
     Indication: Ulcer
     Dosage: 20 MG, 1X/DAY
     Route: 048
     Dates: start: 20201116, end: 20220615
  5. HERBALS [Concomitant]
     Active Substance: HERBALS
     Indication: Hypoaesthesia
     Dosage: 1.5 G, 3X/DAY
     Dates: start: 20211018, end: 20220615
  6. LOXOPROFEN SODIUM [Concomitant]
     Active Substance: LOXOPROFEN SODIUM
     Indication: Cancer pain
     Dosage: 60 MG, AS NEEDED
     Dates: start: 20191121, end: 20220615

REACTIONS (12)
  - Neoplasm progression [Fatal]
  - Blood alkaline phosphatase increased [Fatal]
  - Blood lactate dehydrogenase increased [Fatal]
  - Gamma-glutamyltransferase increased [Fatal]
  - Gastric perforation [Unknown]
  - Blood calcium decreased [Recovered/Resolved]
  - Blood creatinine decreased [Not Recovered/Not Resolved]
  - Blood glucose decreased [Not Recovered/Not Resolved]
  - Blood sodium decreased [Not Recovered/Not Resolved]
  - Blood urea decreased [Recovered/Resolved]
  - Platelet count increased [Recovered/Resolved]
  - Protein total decreased [Not Recovered/Not Resolved]

NARRATIVE: CASE EVENT DATE: 20220117
